FAERS Safety Report 12352730 (Version 1)
Quarter: 2016Q2

REPORT INFORMATION
  Report Type: Spontaneous
  Country: US (occurrence: US)
  Receive Date: 20160510
  Receipt Date: 20160510
  Transmission Date: 20160815
  Serious: Yes (Hospitalization, Other)
  Sender: FDA-Public Use
  Company Number: US-SA-2016SA087294

PATIENT
  Age: 77 Year
  Sex: Female

DRUGS (3)
  1. LANTUS SOLOSTAR [Suspect]
     Active Substance: INSULIN GLARGINE
     Indication: TYPE 2 DIABETES MELLITUS
     Dosage: DOSE:108 UNIT(S)
     Route: 065
     Dates: start: 2001
  2. LANTUS SOLOSTAR [Suspect]
     Active Substance: INSULIN GLARGINE
     Indication: TYPE 2 DIABETES MELLITUS
     Dosage: DOSE:108 UNIT(S)
     Route: 065
     Dates: start: 2001
  3. SOLOSTAR [Concomitant]
     Active Substance: DEVICE
     Dates: start: 2001

REACTIONS (19)
  - Bronchitis chronic [Unknown]
  - Fall [Unknown]
  - Cerebrovascular accident [Unknown]
  - Incorrect product storage [Unknown]
  - Head injury [Unknown]
  - Headache [Unknown]
  - Constipation [Unknown]
  - Blood glucose increased [Unknown]
  - Asthma [Unknown]
  - Intestinal obstruction [Unknown]
  - Colon cancer [Unknown]
  - Hypertension [Unknown]
  - Pneumonia [Unknown]
  - Insomnia [Unknown]
  - Swollen tongue [Unknown]
  - Myalgia [Unknown]
  - Dyspnoea [Unknown]
  - Chronic obstructive pulmonary disease [Unknown]
  - Dry mouth [Unknown]

NARRATIVE: CASE EVENT DATE: 2007
